FAERS Safety Report 24045300 (Version 1)
Quarter: 2024Q3

REPORT INFORMATION
  Report Type: Spontaneous
  Country: PT (occurrence: PT)
  Receive Date: 20240703
  Receipt Date: 20240703
  Transmission Date: 20241016
  Serious: Yes (Hospitalization, Other)
  Sender: NORDIC PHARMA
  Company Number: PT-JNJFOC-20240421019

PATIENT
  Age: 9 Decade
  Sex: Female

DRUGS (5)
  1. METHOTREXATE [Suspect]
     Active Substance: METHOTREXATE
     Indication: Product used for unknown indication
     Route: 065
  2. WARFARIN [Concomitant]
     Active Substance: WARFARIN
     Indication: Product used for unknown indication
     Route: 048
  3. CLARITHROMYCIN [Concomitant]
     Active Substance: CLARITHROMYCIN
     Indication: Oral candidiasis
     Dosage: 40MG/ML
     Route: 048
  4. LOSARTAN [Concomitant]
     Active Substance: LOSARTAN
     Indication: Product used for unknown indication
     Route: 065
  5. MICONAZOLE [Concomitant]
     Active Substance: MICONAZOLE
     Indication: Oral candidiasis
     Dosage: DOSAGE: 20 MG/G
     Route: 061

REACTIONS (5)
  - Pancytopenia [Recovered/Resolved]
  - Oral candidiasis [Recovered/Resolved]
  - International normalised ratio increased [Recovered/Resolved]
  - Tongue haematoma [Recovered/Resolved]
  - Tongue necrosis [Recovered/Resolved]
